FAERS Safety Report 11831646 (Version 1)
Quarter: 2015Q4

REPORT INFORMATION
  Report Type: Spontaneous
  Country: US (occurrence: None)
  Receive Date: 20151211
  Receipt Date: 20151211
  Transmission Date: 20160305
  Serious: Yes (Other)
  Sender: FDA-Public Use
  Company Number: None

PATIENT
  Age: 49 Year
  Sex: Female
  Weight: 68.95 kg

DRUGS (5)
  1. PLAQUENIL [Concomitant]
     Active Substance: HYDROXYCHLOROQUINE SULFATE
  2. PAROXETINE [Suspect]
     Active Substance: PAROXETINE\PAROXETINE HYDROCHLORIDE
     Indication: FIBROMYALGIA
     Dosage: 1 20 MG PILL ONCE DAILY TAKEN BY MOUTH
     Route: 048
     Dates: start: 20091020, end: 20151001
  3. OMEPROZOLE [Concomitant]
     Active Substance: OMEPRAZOLE
  4. PAROXETINE [Suspect]
     Active Substance: PAROXETINE\PAROXETINE HYDROCHLORIDE
     Indication: DEPRESSION
     Dosage: 1 20 MG PILL ONCE DAILY TAKEN BY MOUTH
     Route: 048
     Dates: start: 20091020, end: 20151001
  5. LYRICA [Concomitant]
     Active Substance: PREGABALIN

REACTIONS (9)
  - Pyrexia [None]
  - Drug withdrawal syndrome [None]
  - Hyperacusis [None]
  - Dysgeusia [None]
  - Photosensitivity reaction [None]
  - Migraine [None]
  - Parosmia [None]
  - Chills [None]
  - Nausea [None]

NARRATIVE: CASE EVENT DATE: 20151118
